FAERS Safety Report 24303754 (Version 9)
Quarter: 2025Q4

REPORT INFORMATION
  Report Type: Report from Study
  Country: CN (occurrence: CN)
  Receive Date: 20240910
  Receipt Date: 20251125
  Transmission Date: 20260117
  Serious: Yes (Hospitalization, Other)
  Sender: ROCHE
  Company Number: CN-ROCHE-10000008448

PATIENT
  Age: 62 Year
  Sex: Male
  Weight: 65 kg

DRUGS (96)
  1. POLATUZUMAB VEDOTIN [Suspect]
     Active Substance: POLATUZUMAB VEDOTIN
     Indication: Diffuse large B-cell lymphoma
     Dosage: SUBSEQUENT DOSE: 24-APR-2024 AND 23-MAY-2024??MOST RECENT USE TIME OF POLIVY : 06-AUG-2024 (120N MG)
     Route: 042
     Dates: start: 20240402, end: 20240402
  2. POLATUZUMAB VEDOTIN [Suspect]
     Active Substance: POLATUZUMAB VEDOTIN
     Route: 042
     Dates: start: 20240711, end: 20240711
  3. DEXAMETHASONE [Suspect]
     Active Substance: DEXAMETHASONE
     Indication: Diffuse large B-cell lymphoma
     Route: 042
     Dates: start: 20240401, end: 20240402
  4. DEXAMETHASONE [Suspect]
     Active Substance: DEXAMETHASONE
     Route: 042
     Dates: start: 20240423, end: 20240425
  5. DEXAMETHASONE [Suspect]
     Active Substance: DEXAMETHASONE
     Route: 042
     Dates: start: 20240522, end: 20240523
  6. DEXAMETHASONE [Suspect]
     Active Substance: DEXAMETHASONE
     Route: 042
     Dates: start: 20240712, end: 20240712
  7. DEXAMETHASONE [Suspect]
     Active Substance: DEXAMETHASONE
     Route: 042
     Dates: start: 20240806, end: 20240806
  8. DEXAMETHASONE [Suspect]
     Active Substance: DEXAMETHASONE
     Route: 042
     Dates: start: 20240903, end: 20240904
  9. DEXAMETHASONE [Suspect]
     Active Substance: DEXAMETHASONE
     Route: 048
     Dates: start: 20240713, end: 20240716
  10. DEXAMETHASONE [Suspect]
     Active Substance: DEXAMETHASONE
     Route: 048
     Dates: start: 20240403, end: 20240405
  11. PREDNISONE [Suspect]
     Active Substance: PREDNISONE
     Indication: Product used for unknown indication
     Route: 065
  12. DOXORUBICIN HYDROCHLORIDE [Suspect]
     Active Substance: DOXORUBICIN HYDROCHLORIDE
     Indication: Diffuse large B-cell lymphoma
     Route: 042
     Dates: start: 20240401, end: 20240401
  13. DOXORUBICIN HYDROCHLORIDE [Suspect]
     Active Substance: DOXORUBICIN HYDROCHLORIDE
     Route: 042
     Dates: start: 20240424, end: 20240424
  14. DOXORUBICIN HYDROCHLORIDE [Suspect]
     Active Substance: DOXORUBICIN HYDROCHLORIDE
     Route: 042
     Dates: start: 20240522, end: 20240522
  15. DOXORUBICIN HYDROCHLORIDE [Suspect]
     Active Substance: DOXORUBICIN HYDROCHLORIDE
     Route: 042
     Dates: start: 20240712, end: 20240712
  16. DOXORUBICIN HYDROCHLORIDE [Suspect]
     Active Substance: DOXORUBICIN HYDROCHLORIDE
     Dosage: START DATE : 06-AUG-2024
     Route: 042
     Dates: end: 20240806
  17. DOXORUBICIN HYDROCHLORIDE [Suspect]
     Active Substance: DOXORUBICIN HYDROCHLORIDE
     Route: 042
     Dates: start: 20240905, end: 20240905
  18. CYCLOPHOSPHAMIDE [Suspect]
     Active Substance: CYCLOPHOSPHAMIDE
     Indication: Diffuse large B-cell lymphoma
     Dosage: 01-APR-2024
     Route: 042
     Dates: start: 20240401, end: 20240806
  19. CYCLOPHOSPHAMIDE [Suspect]
     Active Substance: CYCLOPHOSPHAMIDE
     Dosage: 01-APR-2024
     Route: 042
     Dates: start: 20240712, end: 20240712
  20. CYCLOPHOSPHAMIDE [Suspect]
     Active Substance: CYCLOPHOSPHAMIDE
     Dosage: 01-APR-2024
     Route: 042
     Dates: start: 20240522, end: 20240522
  21. RITUXIMAB [Suspect]
     Active Substance: RITUXIMAB
     Indication: Diffuse large B-cell lymphoma
     Dosage: START DATE: 05-AUG-2024
     Route: 042
     Dates: start: 20240328, end: 20240328
  22. RITUXIMAB [Suspect]
     Active Substance: RITUXIMAB
     Dosage: START DATE: 05-AUG-2024
     Route: 042
     Dates: start: 20240423, end: 20240423
  23. RITUXIMAB [Suspect]
     Active Substance: RITUXIMAB
     Dosage: START DATE: 05-AUG-2024
     Route: 042
     Dates: start: 20240521, end: 20240521
  24. RITUXIMAB [Suspect]
     Active Substance: RITUXIMAB
     Dosage: START DATE: 05-AUG-2024
     Route: 042
     Dates: start: 20240625, end: 20240625
  25. RITUXIMAB [Suspect]
     Active Substance: RITUXIMAB
     Dosage: START DATE: 05-AUG-2024
     Route: 042
     Dates: start: 20240805, end: 20240805
  26. RITUXIMAB [Suspect]
     Active Substance: RITUXIMAB
     Dosage: START DATE: 05-AUG-2024
     Route: 042
     Dates: start: 20240903, end: 20240903
  27. DEXAMETHASONE [Concomitant]
     Active Substance: DEXAMETHASONE
     Indication: Product used for unknown indication
     Route: 048
     Dates: start: 20240403, end: 20240405
  28. DEXAMETHASONE [Concomitant]
     Active Substance: DEXAMETHASONE
     Route: 048
     Dates: start: 20240426, end: 20240428
  29. DEXAMETHASONE [Concomitant]
     Active Substance: DEXAMETHASONE
     Route: 048
     Dates: start: 20240524, end: 20240526
  30. DEXAMETHASONE [Concomitant]
     Active Substance: DEXAMETHASONE
     Route: 048
     Dates: start: 20240713, end: 20240716
  31. DEXAMETHASONE [Concomitant]
     Active Substance: DEXAMETHASONE
     Route: 048
     Dates: start: 20240807, end: 20240810
  32. DEXAMETHASONE [Concomitant]
     Active Substance: DEXAMETHASONE
     Route: 048
     Dates: start: 20240905, end: 20240907
  33. TORSEMIDE [Concomitant]
     Active Substance: TORSEMIDE
     Route: 042
     Dates: start: 20240329, end: 20240329
  34. Dexrazoxan [Concomitant]
     Route: 042
     Dates: start: 20240401, end: 20240401
  35. Dexrazoxan [Concomitant]
     Route: 042
     Dates: start: 20240423, end: 20240423
  36. Dexrazoxan [Concomitant]
     Route: 042
     Dates: start: 20240806, end: 20240806
  37. Dexrazoxan [Concomitant]
     Route: 042
     Dates: start: 20240712, end: 20240712
  38. Fosappitan dimeglumine [Concomitant]
     Route: 042
     Dates: start: 20240401, end: 20240401
  39. Fosappitan dimeglumine [Concomitant]
     Route: 042
     Dates: start: 20240423, end: 20240423
  40. Fosappitan dimeglumine [Concomitant]
     Route: 042
     Dates: start: 20240522, end: 20240522
  41. DEXAMETHASONE SODIUM PHOSPHATE [Concomitant]
     Active Substance: DEXAMETHASONE SODIUM PHOSPHATE
     Indication: Prophylaxis
     Route: 042
     Dates: start: 20240328, end: 20240328
  42. DEXAMETHASONE SODIUM PHOSPHATE [Concomitant]
     Active Substance: DEXAMETHASONE SODIUM PHOSPHATE
     Route: 042
     Dates: start: 20240402, end: 20240402
  43. DEXAMETHASONE SODIUM PHOSPHATE [Concomitant]
     Active Substance: DEXAMETHASONE SODIUM PHOSPHATE
     Route: 042
     Dates: start: 20240424, end: 20240424
  44. DEXAMETHASONE SODIUM PHOSPHATE [Concomitant]
     Active Substance: DEXAMETHASONE SODIUM PHOSPHATE
     Route: 042
     Dates: start: 20240521, end: 20240521
  45. DEXAMETHASONE SODIUM PHOSPHATE [Concomitant]
     Active Substance: DEXAMETHASONE SODIUM PHOSPHATE
     Route: 042
     Dates: start: 20240523, end: 20240523
  46. DEXAMETHASONE SODIUM PHOSPHATE [Concomitant]
     Active Substance: DEXAMETHASONE SODIUM PHOSPHATE
     Route: 042
     Dates: start: 20240625, end: 20240625
  47. DEXAMETHASONE SODIUM PHOSPHATE [Concomitant]
     Active Substance: DEXAMETHASONE SODIUM PHOSPHATE
     Route: 042
     Dates: start: 20241114, end: 20241114
  48. DEXAMETHASONE SODIUM PHOSPHATE [Concomitant]
     Active Substance: DEXAMETHASONE SODIUM PHOSPHATE
     Route: 042
     Dates: start: 20240712, end: 20240712
  49. DEXAMETHASONE SODIUM PHOSPHATE [Concomitant]
     Active Substance: DEXAMETHASONE SODIUM PHOSPHATE
     Route: 042
     Dates: start: 20240711, end: 20240711
  50. DEXAMETHASONE SODIUM PHOSPHATE [Concomitant]
     Active Substance: DEXAMETHASONE SODIUM PHOSPHATE
     Route: 042
     Dates: start: 20240625, end: 20240625
  51. PROMETHAZINE HYDROCHLORIDE [Concomitant]
     Active Substance: PROMETHAZINE HYDROCHLORIDE
     Indication: Prophylaxis
     Route: 030
     Dates: start: 20240328, end: 20240328
  52. PROMETHAZINE HYDROCHLORIDE [Concomitant]
     Active Substance: PROMETHAZINE HYDROCHLORIDE
     Route: 030
     Dates: start: 20240402, end: 20240402
  53. PROMETHAZINE HYDROCHLORIDE [Concomitant]
     Active Substance: PROMETHAZINE HYDROCHLORIDE
     Route: 030
     Dates: start: 20240424, end: 20240424
  54. PROMETHAZINE HYDROCHLORIDE [Concomitant]
     Active Substance: PROMETHAZINE HYDROCHLORIDE
     Route: 030
     Dates: start: 20240521, end: 20240521
  55. PROMETHAZINE HYDROCHLORIDE [Concomitant]
     Active Substance: PROMETHAZINE HYDROCHLORIDE
     Route: 030
     Dates: start: 20240523, end: 20240523
  56. PROMETHAZINE HYDROCHLORIDE [Concomitant]
     Active Substance: PROMETHAZINE HYDROCHLORIDE
     Route: 030
     Dates: start: 20240625, end: 20240625
  57. PROMETHAZINE HYDROCHLORIDE [Concomitant]
     Active Substance: PROMETHAZINE HYDROCHLORIDE
     Route: 030
     Dates: start: 20240805, end: 20240805
  58. PROMETHAZINE HYDROCHLORIDE [Concomitant]
     Active Substance: PROMETHAZINE HYDROCHLORIDE
     Route: 030
     Dates: start: 20241114, end: 20241114
  59. PROMETHAZINE HYDROCHLORIDE [Concomitant]
     Active Substance: PROMETHAZINE HYDROCHLORIDE
     Route: 030
     Dates: start: 20240712, end: 20240712
  60. PROMETHAZINE HYDROCHLORIDE [Concomitant]
     Active Substance: PROMETHAZINE HYDROCHLORIDE
     Route: 030
     Dates: start: 20240711, end: 20240711
  61. PROMETHAZINE HYDROCHLORIDE [Concomitant]
     Active Substance: PROMETHAZINE HYDROCHLORIDE
     Route: 030
     Dates: start: 20240625, end: 20240625
  62. PEGylated Recombinant Human Granulocyte Colony-Stimulating [Concomitant]
     Route: 058
     Dates: start: 20240402, end: 20240402
  63. PEGylated Recombinant Human Granulocyte Colony-Stimulating [Concomitant]
     Route: 058
     Dates: start: 20240714, end: 20240714
  64. PEGylated Recombinant Human Granulocyte Colony-Stimulating [Concomitant]
     Route: 058
     Dates: start: 20240703, end: 20240703
  65. PEGylated Recombinant Human Granulocyte Colony-Stimulating [Concomitant]
     Route: 058
     Dates: start: 20240702, end: 20240702
  66. PEGylated Recombinant Human Granulocyte Colony-Stimulating [Concomitant]
     Route: 058
     Dates: start: 20240628, end: 20240628
  67. PEGylated Recombinant Human Granulocyte Colony-Stimulating [Concomitant]
     Route: 058
     Dates: start: 20240627, end: 20240627
  68. PEGylated Recombinant Human Granulocyte Colony-Stimulating [Concomitant]
     Route: 058
     Dates: start: 20240626, end: 20240626
  69. PEGylated Recombinant Human Granulocyte Colony-Stimulating [Concomitant]
     Route: 058
     Dates: start: 20240625, end: 20240625
  70. AMILORIDE HYDROCHLORIDE\HYDROCHLOROTHIAZIDE [Concomitant]
     Active Substance: AMILORIDE HYDROCHLORIDE\HYDROCHLOROTHIAZIDE
     Dosage: DOSE: 1 TABLET
     Route: 048
     Dates: start: 20240422, end: 20240425
  71. AMILORIDE HYDROCHLORIDE\HYDROCHLOROTHIAZIDE [Concomitant]
     Active Substance: AMILORIDE HYDROCHLORIDE\HYDROCHLOROTHIAZIDE
     Dosage: DOSE: 1 TABLET
     Route: 048
     Dates: start: 20240711, end: 20240712
  72. AMILORIDE HYDROCHLORIDE\HYDROCHLOROTHIAZIDE [Concomitant]
     Active Substance: AMILORIDE HYDROCHLORIDE\HYDROCHLOROTHIAZIDE
     Dosage: DOSE: 1 TABLET
     Route: 048
     Dates: start: 20240624, end: 20240704
  73. LANSOPRAZOLE [Concomitant]
     Active Substance: LANSOPRAZOLE
     Route: 042
     Dates: start: 20240628, end: 20240628
  74. LANSOPRAZOLE [Concomitant]
     Active Substance: LANSOPRAZOLE
     Route: 042
     Dates: start: 20240628, end: 20240704
  75. REPAGLINIDE [Concomitant]
     Active Substance: REPAGLINIDE
     Dosage: MEDICAL HISTORY?1 TABLET
     Route: 048
  76. FUROSEMIDE [Concomitant]
     Active Substance: FUROSEMIDE
     Route: 042
     Dates: start: 20240711, end: 20240711
  77. CALCIUM CARBONATE [Concomitant]
     Active Substance: CALCIUM CARBONATE
     Route: 048
     Dates: start: 20240711, end: 20240712
  78. CALCIUM CARBONATE [Concomitant]
     Active Substance: CALCIUM CARBONATE
     Route: 048
     Dates: start: 20240624, end: 20240704
  79. Vitamin D3 Tablets [Concomitant]
     Route: 048
     Dates: start: 20240711, end: 20240712
  80. Vitamin D3 Tablets [Concomitant]
     Route: 048
     Dates: start: 20240624, end: 20240704
  81. SODIUM BICARBONATE [Concomitant]
     Active Substance: SODIUM BICARBONATE
     Route: 042
     Dates: start: 20240711, end: 20240712
  82. SODIUM BICARBONATE [Concomitant]
     Active Substance: SODIUM BICARBONATE
     Route: 042
     Dates: start: 20240624, end: 20240704
  83. Rabeprazole Sodium for Injection [Concomitant]
     Route: 042
     Dates: start: 20240711, end: 20240712
  84. Magnesium Isoglycyrrhizinate Injection [Concomitant]
     Route: 042
     Dates: start: 20240711, end: 20240712
  85. Magnesium Isoglycyrrhizinate Injection [Concomitant]
     Route: 042
     Dates: start: 20240624, end: 20240704
  86. FEBUXOSTAT [Concomitant]
     Active Substance: FEBUXOSTAT
     Route: 048
     Dates: start: 20240711, end: 20240712
  87. FEBUXOSTAT [Concomitant]
     Active Substance: FEBUXOSTAT
     Route: 048
     Dates: start: 20240624, end: 20240704
  88. Human Immunoglobulin?pH4?for Intravenous Injection [Concomitant]
     Route: 042
     Dates: start: 20240626, end: 20240626
  89. Human Immunoglobulin?pH4?for Intravenous Injection [Concomitant]
     Route: 042
     Dates: start: 20240627, end: 20240627
  90. CIMETIDINE [Concomitant]
     Active Substance: CIMETIDINE
     Route: 042
     Dates: start: 20240624, end: 20240628
  91. Entecavir Tablets [Concomitant]
     Route: 048
     Dates: start: 20240423
  92. PIPERACILLIN SODIUM\TAZOBACTAM SODIUM [Concomitant]
     Active Substance: PIPERACILLIN SODIUM\TAZOBACTAM SODIUM
     Route: 042
     Dates: start: 202407, end: 202407
  93. LECITHIN [Concomitant]
     Active Substance: LECITHIN
     Route: 042
     Dates: start: 20240630, end: 20240704
  94. BICYCLOL [Concomitant]
     Active Substance: BICYCLOL
     Route: 048
     Dates: start: 20240630, end: 20240704
  95. Reduced Glutathione For Injection [Concomitant]
     Route: 042
     Dates: start: 20240630, end: 20240704
  96. ecombinant Human Erythropoietin Injection(CHO cell) [Concomitant]
     Route: 058
     Dates: start: 20240625, end: 20240704

REACTIONS (9)
  - Anaemia [Recovered/Resolved]
  - White blood cell count decreased [Recovered/Resolved]
  - Neutrophil count decreased [Recovered/Resolved]
  - Pneumonia [Recovered/Resolved]
  - Lower respiratory tract infection [Recovered/Resolved]
  - Granulocytopenia [Recovered/Resolved]
  - Platelet count decreased [Recovered/Resolved]
  - Alanine aminotransferase increased [Recovered/Resolved]
  - Aspartate aminotransferase increased [Recovered/Resolved]

NARRATIVE: CASE EVENT DATE: 20240527
